FAERS Safety Report 19234285 (Version 1)
Quarter: 2021Q2

REPORT INFORMATION
  Report Type: Spontaneous
  Country: ES (occurrence: ES)
  Receive Date: 20210508
  Receipt Date: 20210508
  Transmission Date: 20210717
  Serious: Yes (Hospitalization)
  Sender: FDA-Public Use
  Company Number: ES-MSNLABS-2021MSNLIT00115

PATIENT

DRUGS (11)
  1. PARACETAMOL [Interacting]
     Active Substance: ACETAMINOPHEN
     Route: 048
  2. METHYLPREDNISOLONE. [Interacting]
     Active Substance: METHYLPREDNISOLONE
     Route: 030
  3. PEMBROLIZUMAB. [Concomitant]
     Active Substance: PEMBROLIZUMAB
     Dosage: 200 MG EVERY 3 WEEKS
     Route: 042
     Dates: start: 201909
  4. PARACETAMOL [Interacting]
     Active Substance: ACETAMINOPHEN
     Indication: PRODUCT USED FOR UNKNOWN INDICATION
     Route: 048
  5. DEXCHLORPHENIRAMINE [Interacting]
     Active Substance: DEXCHLORPHENIRAMINE
     Route: 058
  6. PREDNISONE. [Concomitant]
     Active Substance: PREDNISONE
     Route: 048
     Dates: start: 201909
  7. DEXCHLORPHENIRAMINE [Interacting]
     Active Substance: DEXCHLORPHENIRAMINE
     Indication: PRODUCT USED FOR UNKNOWN INDICATION
     Dosage: 2 MG / 8 HR
     Route: 048
  8. ABIRATERONE ACETATE TABLETS 250MG [Suspect]
     Active Substance: ABIRATERONE ACETATE
     Route: 065
  9. METHYLPREDNISOLONE. [Interacting]
     Active Substance: METHYLPREDNISOLONE
     Indication: PRODUCT USED FOR UNKNOWN INDICATION
     Dosage: 40 MG/24 H
     Route: 048
  10. ABIRATERONE ACETATE TABLETS 250MG [Suspect]
     Active Substance: ABIRATERONE ACETATE
     Indication: PROSTATE CANCER STAGE IV
     Dosage: 2 TABLETS ONCE DAILY
     Route: 048
     Dates: start: 201909
  11. PREDNISONE. [Concomitant]
     Active Substance: PREDNISONE
     Route: 065

REACTIONS (1)
  - Type IV hypersensitivity reaction [Recovered/Resolved]
